FAERS Safety Report 17753473 (Version 1)
Quarter: 2020Q2

REPORT INFORMATION
  Report Type: Spontaneous
  Country: US (occurrence: US)
  Receive Date: 20200506
  Receipt Date: 20200506
  Transmission Date: 20200714
  Serious: No
  Sender: FDA-Public Use
  Company Number: US-ROCHE-2526558

PATIENT
  Sex: Female

DRUGS (15)
  1. CEVIMELINE. [Concomitant]
     Active Substance: CEVIMELINE
     Route: 065
  2. HYDROXYZINE [Concomitant]
     Active Substance: HYDROXYZINE HYDROCHLORIDE
     Route: 065
  3. VENTOLIN HFA [Concomitant]
     Active Substance: ALBUTEROL SULFATE
  4. CALCIUM [Concomitant]
     Active Substance: CALCIUM
  5. LIDOCAINE. [Concomitant]
     Active Substance: LIDOCAINE
  6. QVAR [Concomitant]
     Active Substance: BECLOMETHASONE DIPROPIONATE
  7. RESTASIS [Concomitant]
     Active Substance: CYCLOSPORINE
  8. ESBRIET [Suspect]
     Active Substance: PIRFENIDONE
     Indication: IDIOPATHIC PULMONARY FIBROSIS
     Route: 048
     Dates: start: 20170808
  9. CLONAZEPAM. [Concomitant]
     Active Substance: CLONAZEPAM
     Route: 065
  10. PROAIR HFA [Concomitant]
     Active Substance: ALBUTEROL SULFATE
  11. SAVELLA [Concomitant]
     Active Substance: MILNACIPRAN HYDROCHLORIDE
  12. VOLTAREN [DICLOFENAC] [Concomitant]
     Active Substance: DICLOFENAC SODIUM
  13. FLUTICASONE. [Concomitant]
     Active Substance: FLUTICASONE
  14. FENTANYL. [Concomitant]
     Active Substance: FENTANYL
  15. METOCLOPRAMIDE. [Concomitant]
     Active Substance: METOCLOPRAMIDE
     Route: 065

REACTIONS (1)
  - Nausea [Unknown]
